FAERS Safety Report 8228489-0 (Version None)
Quarter: 2012Q1

REPORT INFORMATION
  Report Type: 
  Country: None (occurrence: None)
  Receive Date: 20120322
  Receipt Date: 20110708
  Transmission Date: 20120608
  Serious: No
  Sender: FDA-Public Use
  Company Number: US-BRISTOL-MYERS SQUIBB COMPANY-15782162

PATIENT
  Age: 67 Year
  Sex: Female
  Weight: 57 kg

DRUGS (3)
  1. OXYGEN [Concomitant]
     Dosage: AT NIGHT
  2. ERBITUX [Suspect]
     Indication: THROAT CANCER
     Dosage: FOURTH DOSE :25MAY2011
     Dates: start: 20110511
  3. HYPERTENSION MEDICATION [Concomitant]

REACTIONS (3)
  - CHAPPED LIPS [None]
  - LIP HAEMORRHAGE [None]
  - RASH [None]
